FAERS Safety Report 23183697 (Version 1)
Quarter: 2023Q4

REPORT INFORMATION
  Report Type: Spontaneous
  Country: None (occurrence: US)
  Receive Date: 20231114
  Receipt Date: 20231114
  Transmission Date: 20240109
  Serious: Yes (Life-Threatening)
  Sender: FDA-Public Use
  Company Number: US-Vero Biotech-2148253

PATIENT
  Age: 1 Day

DRUGS (2)
  1. GENOSYL [Suspect]
     Active Substance: NITRIC OXIDE
     Indication: Oxygen saturation
     Route: 055
     Dates: start: 20231029
  2. GENOSYL [Suspect]
     Active Substance: NITRIC OXIDE

REACTIONS (3)
  - Pulmonary hypertension [Unknown]
  - Tidal volume abnormal [Unknown]
  - Undersensing [Unknown]

NARRATIVE: CASE EVENT DATE: 20231030
